FAERS Safety Report 8181430-1 (Version None)
Quarter: 2012Q1

REPORT INFORMATION
  Report Type: 
  Country: None (occurrence: None)
  Receive Date: 20120302
  Receipt Date: 20120228
  Transmission Date: 20120608
  Serious: Yes (Death)
  Sender: FDA-Public Use
  Company Number: IT-BAYER-2012-013408

PATIENT
  Age: 65 Year
  Sex: Female
  Weight: 63 kg

DRUGS (19)
  1. CALCIUM [Concomitant]
     Indication: HYPOPARATHYROIDISM
     Dosage: 1000 MG, UNK
     Dates: start: 20061212
  2. ULTRAVIST 370 [Concomitant]
     Dosage: 150 CC
     Dates: start: 20101214, end: 20101214
  3. ULTRAVIST 370 [Concomitant]
     Dosage: 150 CC
     Dates: start: 20100604, end: 20100604
  4. ULTRAVIST 370 [Concomitant]
     Dosage: 150 CC
     Dates: start: 20110622, end: 20110622
  5. ULTRAVIST 370 [Concomitant]
     Dosage: 150 CC
     Dates: start: 20110913, end: 20110913
  6. SORAFENIB (RAF KINASE INHIBITOR) [Suspect]
     Dosage: UNK
     Dates: start: 20100701
  7. ULTRAVIST 370 [Concomitant]
     Dosage: 150 CC
     Dates: start: 20110503, end: 20110503
  8. PROTIFAR [Concomitant]
     Indication: WEIGHT DECREASED
     Dosage: UNK
     Dates: start: 20111214
  9. ULTRAVIST 370 [Concomitant]
     Dosage: 150 CC
     Dates: start: 20100730, end: 20100730
  10. ULTRAVIST 370 [Concomitant]
     Dosage: 370 ML, UNK
     Dates: start: 20111118, end: 20111118
  11. SORAFENIB (RAF KINASE INHIBITOR) [Suspect]
     Indication: THYROID CANCER
     Dosage: 600 MG, QD
     Dates: start: 20120117, end: 20120207
  12. OLMESARTAN [Concomitant]
     Indication: HYPERTENSION
     Dosage: 20 MG, UNK
     Dates: start: 20101111
  13. ULTRAVIST 370 [Concomitant]
     Dosage: 150 CC
     Dates: start: 20100302, end: 20100302
  14. LEVOTHYROXINE SODIUM [Concomitant]
     Indication: HYPOTHYROIDISM
     Dosage: 164 MCG/24HR, UNK
     Dates: start: 20061212
  15. PROPRANOLOL [Concomitant]
     Indication: ARRHYTHMIA PROPHYLAXIS
     Dosage: 20 MG, UNK
     Dates: start: 20081126
  16. ULTRAVIST 370 [Concomitant]
     Dosage: 150 CC
     Dates: start: 20110301, end: 20110301
  17. PLACEBO [Suspect]
     Indication: THYROID CANCER
     Dosage: 600 MG, DAILY
     Route: 048
     Dates: end: 20100701
  18. VITAMIN D [Concomitant]
     Indication: HYPOPARATHYROIDISM
     Dosage: 1 MG, UNK
     Dates: start: 20061212
  19. TPN [Concomitant]
     Indication: WEIGHT DECREASED
     Dosage: 2 BOTTLES
     Dates: start: 20111214

REACTIONS (1)
  - CARDIAC ARREST [None]
